FAERS Safety Report 16478727 (Version 1)
Quarter: 2019Q2

REPORT INFORMATION
  Report Type: Spontaneous
  Country: US (occurrence: US)
  Receive Date: 20190626
  Receipt Date: 20190626
  Transmission Date: 20190711
  Serious: No
  Sender: FDA-Public Use
  Company Number: US-PFIZER INC-2019157694

PATIENT
  Age: 66 Year
  Sex: Female

DRUGS (3)
  1. DEMEROL [Suspect]
     Active Substance: MEPERIDINE HYDROCHLORIDE
     Indication: MIGRAINE
     Dosage: UNK, AS NEEDED (50-100MG EVERY 4 HOURS AS NEEDED)
     Route: 030
  2. DEMEROL [Suspect]
     Active Substance: MEPERIDINE HYDROCHLORIDE
     Indication: PAIN
  3. DEMEROL [Suspect]
     Active Substance: MEPERIDINE HYDROCHLORIDE
     Indication: CHRONIC DISEASE

REACTIONS (2)
  - Poor quality product administered [Unknown]
  - Memory impairment [Unknown]
